FAERS Safety Report 10067888 (Version 1)
Quarter: 2014Q2

REPORT INFORMATION
  Report Type: Spontaneous
  Country: US (occurrence: None)
  Receive Date: 20140401
  Receipt Date: 20140401
  Transmission Date: 20141212
  Serious: Yes (Other)
  Sender: FDA-Public Use
  Company Number: PHEH2013US025340

PATIENT
  Age: 43 Year
  Sex: Male

DRUGS (2)
  1. TASIGNA (NILOTINIB) CAPSULE, 200MG [Suspect]
     Indication: CHRONIC MYELOID LEUKAEMIA
     Route: 048
     Dates: start: 201311, end: 20131116
  2. ENBREL (ETANERCEPT) [Suspect]
     Indication: ARTHRITIS

REACTIONS (5)
  - Platelet count decreased [None]
  - Neutrophil count decreased [None]
  - White blood cell count decreased [None]
  - Arthritis [None]
  - Pain in extremity [None]
